FAERS Safety Report 5358161-6 (Version None)
Quarter: 2007Q2

REPORT INFORMATION
  Report Type: 
  Country: None (occurrence: None)
  Receive Date: 20070530
  Receipt Date: 20061019
  Transmission Date: 20071010
  Serious: Yes (Hospitalization)
  Sender: FDA-Public Use
  Company Number: US200605005668

PATIENT
  Sex: Female
  Weight: 121.1 kg

DRUGS (1)
  1. ZYPREXA [Suspect]
     Dosage: SEE IMAGE
     Dates: start: 20000101, end: 20040101

REACTIONS (1)
  - DIABETES MELLITUS [None]
